FAERS Safety Report 16298393 (Version 4)
Quarter: 2019Q2

REPORT INFORMATION
  Report Type: Report from Study
  Country: None (occurrence: SE)
  Receive Date: 20190510
  Receipt Date: 20190524
  Transmission Date: 20190711
  Serious: Yes (Other)
  Sender: FDA-Public Use
  Company Number: SE-ABBVIE-19S-150-2775738-00

PATIENT
  Age: 76 Year
  Sex: Male

DRUGS (4)
  1. MADOPARK [Concomitant]
     Active Substance: BENSERAZIDE HYDROCHLORIDE\LEVODOPA
     Indication: PRODUCT USED FOR UNKNOWN INDICATION
     Route: 065
  2. DUODOPA [Suspect]
     Active Substance: CARBIDOPA\LEVODOPA
     Dosage: CURRENT DOSAGE:MD: 4.5 ML + 3ML = 7.5 ML, CD: 3.7 ML/H, ED: 1.5 ML
     Route: 050
     Dates: start: 20190521
  3. ANTIBIOTIC [Concomitant]
     Active Substance: UNSPECIFIED INGREDIENT
     Indication: PRODUCT USED FOR UNKNOWN INDICATION
  4. DUODOPA [Suspect]
     Active Substance: CARBIDOPA\LEVODOPA
     Indication: PARKINSON^S DISEASE
     Dosage: MD ON THE PUMP FROM 4.5 ML TO 7.5 ML, CD3.7 ML/H AND ED 1.5 ML.
     Route: 050
     Dates: start: 20190312

REACTIONS (6)
  - Diverticular perforation [Recovered/Resolved]
  - Gastrointestinal injury [Recovered/Resolved]
  - Tremor [Not Recovered/Not Resolved]
  - Device difficult to use [Unknown]
  - Musculoskeletal stiffness [Not Recovered/Not Resolved]
  - Skin disorder [Unknown]

NARRATIVE: CASE EVENT DATE: 2019
